FAERS Safety Report 21768020 (Version 2)
Quarter: 2022Q4

REPORT INFORMATION
  Report Type: Spontaneous
  Country: ES (occurrence: ES)
  Receive Date: 20221222
  Receipt Date: 20221230
  Transmission Date: 20230112
  Serious: Yes (Hospitalization, Other)
  Sender: FDA-Public Use
  Company Number: ES-002147023-NVSC2022ES291122

PATIENT
  Age: 73 Year

DRUGS (10)
  1. QUETIAPINE [Suspect]
     Active Substance: QUETIAPINE
     Indication: Persistent depressive disorder
     Dosage: UNK
     Route: 065
  2. DESVENLAFAXINE [Concomitant]
     Active Substance: DESVENLAFAXINE
     Indication: Persistent depressive disorder
     Dosage: UNK
     Route: 065
  3. KETAZOLAM [Concomitant]
     Active Substance: KETAZOLAM
     Indication: Product used for unknown indication
     Dosage: UNK
     Route: 065
  4. LORAZEPAM [Concomitant]
     Active Substance: LORAZEPAM
     Indication: Product used for unknown indication
     Dosage: UNK
     Route: 065
  5. ENALAPRIL\HYDROCHLOROTHIAZIDE [Concomitant]
     Active Substance: ENALAPRIL\HYDROCHLOROTHIAZIDE
     Indication: Product used for unknown indication
     Dosage: UNK
     Route: 065
  6. OMEPRAZOLE [Concomitant]
     Active Substance: OMEPRAZOLE
     Indication: Product used for unknown indication
     Dosage: UNK
     Route: 065
  7. SIMVASTATIN [Concomitant]
     Active Substance: SIMVASTATIN
     Indication: Product used for unknown indication
     Dosage: UNK
     Route: 065
  8. ACETAMINOPHEN\TRAMADOL [Concomitant]
     Active Substance: ACETAMINOPHEN\TRAMADOL
     Indication: Product used for unknown indication
     Dosage: UNK
     Route: 065
  9. ALENDRONATE SODIUM\CHOLECALCIFEROL [Concomitant]
     Active Substance: ALENDRONATE SODIUM\CHOLECALCIFEROL
     Indication: Product used for unknown indication
     Dosage: UNK
     Route: 065
  10. CALCIFEDIOL [Concomitant]
     Active Substance: CALCIFEDIOL
     Indication: Product used for unknown indication
     Dosage: UNK
     Route: 065

REACTIONS (3)
  - Colitis ischaemic [Recovered/Resolved]
  - Intentional product use issue [Unknown]
  - Product use in unapproved indication [Unknown]
